FAERS Safety Report 9912096 (Version 1)
Quarter: 2014Q1

REPORT INFORMATION
  Report Type: Spontaneous
  Country: CA (occurrence: CA)
  Receive Date: 20140219
  Receipt Date: 20140219
  Transmission Date: 20141002
  Serious: Yes (Other)
  Sender: FDA-Public Use
  Company Number: CA-AMGEN-CANSP2014011156

PATIENT
  Age: 69 Year
  Sex: Male

DRUGS (1)
  1. ENBREL [Suspect]
     Indication: ANKYLOSING SPONDYLITIS
     Dosage: 50 MG, QWK
     Route: 065
     Dates: start: 20131210, end: 20140114

REACTIONS (5)
  - Angina pectoris [Unknown]
  - Feeling abnormal [Unknown]
  - Confusional state [Unknown]
  - Lip swelling [Unknown]
  - Paraesthesia [Unknown]
